FAERS Safety Report 12012233 (Version 1)
Quarter: 2016Q1

REPORT INFORMATION
  Report Type: Spontaneous
  Country: UG (occurrence: UG)
  Receive Date: 20160205
  Receipt Date: 20160205
  Transmission Date: 20160526
  Serious: Yes (Other)
  Sender: FDA-Public Use
  Company Number: UG-ABBVIE-16P-165-1552341-00

PATIENT
  Age: 39 Year
  Sex: Female

DRUGS (4)
  1. LAMIVUDINE W/TENOFOVIR DISOPROXIL FUMARATE [Suspect]
     Active Substance: LAMIVUDINE\TENOFOVIR DISOPROXIL FUMARATE
     Indication: PRODUCT USED FOR UNKNOWN INDICATION
     Dosage: PRIOR TO CONCEPTION; FIRST TRIMESTER EXPOSURE
     Route: 048
     Dates: start: 20111011
  2. VIREAD [Suspect]
     Active Substance: TENOFOVIR DISOPROXIL FUMARATE
     Indication: PRODUCT USED FOR UNKNOWN INDICATION
     Dosage: FIRST TRIMESTER EXPOSURE
     Route: 048
     Dates: start: 20120103
  3. EPIVIR [Suspect]
     Active Substance: LAMIVUDINE
     Indication: PRODUCT USED FOR UNKNOWN INDICATION
     Dosage: FIRST TRIMESTER EXPOSURE
     Route: 048
     Dates: start: 20120103
  4. KALETRA [Suspect]
     Active Substance: LOPINAVIR\RITONAVIR
     Indication: PRODUCT USED FOR UNKNOWN INDICATION
     Dosage: PRIOR TO CONCEPTION; FIRST TRIMESTER EXPOSURE
     Route: 048
     Dates: start: 20110426

REACTIONS (4)
  - Foetal death [Unknown]
  - Exposure during pregnancy [Unknown]
  - Benign hydatidiform mole [Unknown]
  - Abortion induced [Unknown]

NARRATIVE: CASE EVENT DATE: 20120212
